FAERS Safety Report 5599622-4 (Version None)
Quarter: 2008Q1

REPORT INFORMATION
  Report Type: 
  Country: None (occurrence: None)
  Receive Date: 20080123
  Receipt Date: 20080118
  Transmission Date: 20080703
  Serious: Yes (Hospitalization)
  Sender: FDA-Public Use
  Company Number: JP-ELI_LILLY_AND_COMPANY-JP200711006444

PATIENT
  Sex: Female
  Weight: 38 kg

DRUGS (5)
  1. ZYPREXA [Suspect]
     Indication: DEMENTIA ALZHEIMER'S TYPE
     Dosage: 10 MG, DAILY (1/D)
     Route: 048
     Dates: start: 20071017, end: 20071019
  2. ZYPREXA [Suspect]
     Dosage: 15 MG, EACH EVENING
     Route: 048
     Dates: start: 20071020, end: 20071023
  3. ZYPREXA [Suspect]
     Dosage: 20 MG, EACH EVENING
     Route: 048
     Dates: start: 20071024, end: 20071125
  4. CRAVIT [Concomitant]
     Indication: URINARY TRACT INFECTION
     Dosage: 400 MG, DAILY (1/D)
     Route: 048
     Dates: start: 20071107, end: 20071114
  5. CRAVIT [Concomitant]
     Dosage: 600 MG, DAILY (1/D)
     Route: 048
     Dates: start: 20071115, end: 20071124

REACTIONS (2)
  - GRANULOCYTOPENIA [None]
  - PYREXIA [None]
